FAERS Safety Report 4505887-X (Version None)
Quarter: 2004Q4

REPORT INFORMATION
  Report Type: 
  Country: None (occurrence: None)
  Receive Date: 20041025
  Receipt Date: 20040621
  Transmission Date: 20050328
  Serious: Yes (Other)
  Sender: FDA-Public Use
  Company Number: US-JNJFOC-20040101752

PATIENT
  Age: 50 Year
  Sex: Female
  Weight: 140.1615 kg

DRUGS (34)
  1. REMICADE [Suspect]
     Indication: ANKYLOSING SPONDYLITIS
     Dosage: INTRAVENOUS
     Route: 042
     Dates: start: 20031201
  2. NAPROSYN [Concomitant]
  3. ALLEGRA [Concomitant]
  4. PRINIVIL [Concomitant]
  5. ATENOLOL [Concomitant]
  6. MULTIVITAMIN (MULTIVITAMINS) [Concomitant]
  7. VITAMIN E [Concomitant]
  8. CENTRUM (CENTRUM) [Concomitant]
  9. ACIDOPHILUS (LACTOBACILLUS ACIDOPHILUS) [Concomitant]
  10. LASIX [Concomitant]
  11. POTASSIUM (POTASSIUM) [Concomitant]
  12. DOXEPIN (DOXEPIN) [Concomitant]
  13. NEXIUM [Concomitant]
  14. ELDOQUIN (HYDROQUINONE) [Concomitant]
  15. TERAZOLE (TERCONAZOLE) [Concomitant]
  16. NYSTATIN [Concomitant]
  17. CIPRO [Concomitant]
  18. LOMOTIL [Concomitant]
  19. XANAX [Concomitant]
  20. TYLENOL W/ CODEINE NO. 3 [Concomitant]
  21. PARAFON FORTE (CHLORZOXAZONE) UNSPECIFIED [Concomitant]
  22. B 12 (CYANOCOBALAMIN) [Concomitant]
  23. DIFLUCAN [Concomitant]
  24. LEVSIN (HYOSCYAMINE SULFATE) [Concomitant]
  25. ULTRACET (TRAMADOL/APAP) [Concomitant]
  26. WELLBUTRIN [Concomitant]
  27. KENALOG [Concomitant]
  28. LOCOID [Concomitant]
  29. ZYRTEC [Concomitant]
  30. FLONASE [Concomitant]
  31. Z PACK (ANTIBIOTICS) [Concomitant]
  32. ZANTAC [Concomitant]
  33. BENADRYL [Concomitant]
  34. TYLENOL [Concomitant]

REACTIONS (5)
  - CONTUSION [None]
  - HYPERTENSION [None]
  - RASH [None]
  - RASH MACULO-PAPULAR [None]
  - TRANSIENT ISCHAEMIC ATTACK [None]
